FAERS Safety Report 17183397 (Version 1)
Quarter: 2019Q4

REPORT INFORMATION
  Report Type: Spontaneous
  Country: CN (occurrence: CN)
  Receive Date: 20191220
  Receipt Date: 20191220
  Transmission Date: 20200122
  Serious: Yes (Hospitalization)
  Sender: FDA-Public Use
  Company Number: NVSC2019CN072431

PATIENT
  Age: 65 Year
  Sex: Male

DRUGS (1)
  1. EXFORGE [Suspect]
     Active Substance: AMLODIPINE BESYLATE\VALSARTAN
     Indication: HYPERTENSION
     Dosage: UNK
     Route: 048

REACTIONS (6)
  - Hypertension [Unknown]
  - Off label use [Unknown]
  - End stage renal disease [Unknown]
  - Hyperkalaemia [Unknown]
  - Arteriosclerosis [Unknown]
  - Aortic aneurysm [Unknown]
